FAERS Safety Report 5632500-0 (Version None)
Quarter: 2008Q1

REPORT INFORMATION
  Report Type: 
  Country: None (occurrence: None)
  Receive Date: 20080220
  Receipt Date: 20080207
  Transmission Date: 20080703
  Serious: Yes (Hospitalization, Other)
  Sender: FDA-Public Use
  Company Number: US-ELI_LILLY_AND_COMPANY-US200801003686

PATIENT
  Sex: Male
  Weight: 36.281 kg

DRUGS (2)
  1. SOMATROPIN [Suspect]
     Indication: GROWTH HORMONE DEFICIENCY
     Dosage: 1.4 MG, 6/W
     Route: 058
     Dates: start: 20070828, end: 20071208
  2. SOMATROPIN [Suspect]
     Dosage: 1.4 MG, 6/W
     Route: 058
     Dates: start: 20071128

REACTIONS (3)
  - MONONUCLEOSIS SYNDROME [None]
  - PNEUMONIA MYCOPLASMAL [None]
  - URETHRAL STENOSIS [None]
